FAERS Safety Report 7542962-X (Version None)
Quarter: 2011Q2

REPORT INFORMATION
  Report Type: 
  Country: None (occurrence: None)
  Receive Date: 20110613
  Receipt Date: 20110606
  Transmission Date: 20111010
  Serious: Yes (Death, Other)
  Sender: FDA-Public Use
  Company Number: IL-CELGENEUS-082-50794-11060827

PATIENT
  Age: 87 Year
  Sex: Female

DRUGS (1)
  1. VIDAZA [Suspect]
     Route: 050

REACTIONS (5)
  - DRUG INEFFECTIVE [None]
  - NEUTROPENIA [None]
  - HAEMOGLOBIN DECREASED [None]
  - GENERAL PHYSICAL HEALTH DETERIORATION [None]
  - THROMBOCYTOPENIA [None]
